FAERS Safety Report 7203385-6 (Version None)
Quarter: 2010Q4

REPORT INFORMATION
  Report Type: 
  Country: None (occurrence: None)
  Receive Date: 20101220
  Receipt Date: 20101207
  Transmission Date: 20110411
  Serious: Yes (Other)
  Sender: FDA-Public Use
  Company Number: 20109785

PATIENT
  Sex: Male

DRUGS (1)
  1. LIORESAL [Suspect]
     Indication: MUSCLE SPASTICITY
     Dosage: MCG, DAILY, INTRATHECAL
     Route: 037

REACTIONS (11)
  - DEVICE COMPONENT ISSUE [None]
  - DEVICE DISLOCATION [None]
  - DEVICE INEFFECTIVE [None]
  - DEVICE INFUSION ISSUE [None]
  - DEVICE ISSUE [None]
  - DIABETIC COMPLICATION [None]
  - DIARRHOEA [None]
  - DRUG WITHDRAWAL SYNDROME [None]
  - INFECTION [None]
  - PAIN [None]
  - WEIGHT DECREASED [None]
